FAERS Safety Report 8790795 (Version 1)
Quarter: 2012Q4

REPORT INFORMATION
  Report Type: Spontaneous
  Country: US (occurrence: None)
  Receive Date: 20120913
  Receipt Date: 20120913
  Transmission Date: 20130627
  Serious: Yes (Other)
  Sender: FDA-Public Use
  Company Number: None

PATIENT
  Age: 64 Year
  Sex: Male
  Weight: 89.81 kg

DRUGS (2)
  1. ACETAMINOPHEN [Suspect]
     Indication: ARTHRITIS
     Route: 048
     Dates: start: 201107, end: 201108
  2. DIPHENHYDRAMINE HCL [Suspect]
     Route: 048
     Dates: start: 201107, end: 201108

REACTIONS (2)
  - Tremor [None]
  - Alopecia [None]
